FAERS Safety Report 5685954-8 (Version None)
Quarter: 2008Q1

REPORT INFORMATION
  Report Type: 
  Country: None (occurrence: None)
  Receive Date: 20080328
  Receipt Date: 20070820
  Transmission Date: 20080703
  Serious: Yes (Other)
  Sender: FDA-Public Use
  Company Number: US-BAYER-US-2007-031252

PATIENT
  Age: 33 Year
  Sex: Female
  Weight: 74 kg

DRUGS (4)
  1. MIRENA [Suspect]
     Indication: CONTRACEPTION
     Route: 015
     Dates: start: 20070628
  2. ZYRTEC [Concomitant]
  3. TOPAMAX [Concomitant]
  4. ZANAFLEX [Concomitant]

REACTIONS (4)
  - BREAST ENLARGEMENT [None]
  - BREAST TENDERNESS [None]
  - IUCD COMPLICATION [None]
  - PAIN [None]
